FAERS Safety Report 8459113-X (Version None)
Quarter: 2012Q2

REPORT INFORMATION
  Report Type: 
  Country: None (occurrence: None)
  Receive Date: 20120618
  Receipt Date: 20120606
  Transmission Date: 20120825
  Serious: Yes (Hospitalization, Other)
  Sender: FDA-Public Use
  Company Number: MCA-N-12-060

PATIENT
  Age: 26 Year
  Sex: Male

DRUGS (6)
  1. HALOPERIDOL [Concomitant]
  2. QUETIAPINE [Suspect]
     Indication: PSYCHOTIC DISORDER
     Dosage: 300 MG/DAY DAY 1, 400 MG/DAY DURING DISCHARGE, 800 MG/DAY UNKNOWN DATE
  3. MIRTAZAPINE [Concomitant]
  4. DIVALPROEX SODIUM [Suspect]
     Indication: PSYCHOTIC DISORDER
     Dosage: 1500 MG/DAY DAY 1, 2000 MG/DAY DURING DISCHARGE
  5. CLONAZEPAM [Concomitant]
  6. ZIPRASIDONE HCL [Concomitant]

REACTIONS (1)
  - NEUTROPENIA [None]
